FAERS Safety Report 6933553-X (Version None)
Quarter: 2010Q3

REPORT INFORMATION
  Report Type: 
  Country: None (occurrence: None)
  Receive Date: 20100820
  Receipt Date: 20100809
  Transmission Date: 20110219
  Serious: Yes (Hospitalization)
  Sender: FDA-Public Use
  Company Number: FR-JNJFOC-20100804837

PATIENT
  Sex: Female

DRUGS (11)
  1. IXPRIM [Suspect]
     Indication: PRODUCT USED FOR UNKNOWN INDICATION
     Route: 048
  2. LASIX [Suspect]
     Indication: PRODUCT USED FOR UNKNOWN INDICATION
     Route: 048
  3. ATORVASTATIN CALCIUM [Suspect]
     Indication: PRODUCT USED FOR UNKNOWN INDICATION
     Route: 048
  4. ALDACTONE [Concomitant]
  5. NEXIUM [Concomitant]
     Indication: GASTROOESOPHAGITIS
  6. SPECIAFOLDINE [Concomitant]
  7. ASPEGIC 1000 [Concomitant]
  8. INNOHEP [Concomitant]
  9. PREVISCAN (PENTOXIFYLLINE) [Concomitant]
  10. CYANOCOBALAMIN [Concomitant]
  11. FUMAFER [Concomitant]

REACTIONS (1)
  - LEUKOCYTOCLASTIC VASCULITIS [None]
